FAERS Safety Report 9667804 (Version 1)
Quarter: 2013Q4

REPORT INFORMATION
  Report Type: Spontaneous
  Country: NL (occurrence: NL)
  Receive Date: 20131104
  Receipt Date: 20131104
  Transmission Date: 20140711
  Serious: Yes (Hospitalization)
  Sender: FDA-Public Use
  Company Number: NL-PFIZER INC-2013311744

PATIENT
  Age: 55 Year
  Sex: Female

DRUGS (8)
  1. PANTOPRAZOLE [Suspect]
     Indication: PROPHYLAXIS AGAINST GASTROINTESTINAL ULCER
     Dosage: 40 MG, DAILY
     Route: 048
     Dates: start: 201309, end: 20131017
  2. CARBOPLATINE [Concomitant]
     Dosage: 10 MG/ML; UNK
  3. GEMCITABINE [Concomitant]
     Dosage: 1 MG/ML; UNK
  4. OXAZEPAM [Concomitant]
     Dosage: 10 MG, UNK
  5. PARACETAMOL [Concomitant]
     Dosage: 500 MG, UNK
  6. SIMVASTATIN [Concomitant]
     Dosage: 40 MG, UNK
  7. ACTIQ [Concomitant]
     Dosage: 400 UG, UNK
  8. CLOPIDOGREL [Concomitant]
     Dosage: 75 MG, UNK

REACTIONS (3)
  - Hypokalaemia [Recovering/Resolving]
  - Hypocalcaemia [Recovering/Resolving]
  - Hypomagnesaemia [Recovering/Resolving]
